FAERS Safety Report 16418032 (Version 1)
Quarter: 2019Q2

REPORT INFORMATION
  Report Type: Spontaneous
  Country: CA (occurrence: CA)
  Receive Date: 20190611
  Receipt Date: 20190611
  Transmission Date: 20190711
  Serious: Yes (Other)
  Sender: FDA-Public Use
  Company Number: PHHY2019CA129988

PATIENT
  Age: 34 Year
  Sex: Female

DRUGS (1)
  1. CEFTRIAXONE SODIUM. [Suspect]
     Active Substance: CEFTRIAXONE SODIUM
     Indication: OSTEOMYELITIS
     Dosage: 2 G, UNK
     Route: 042

REACTIONS (2)
  - Diarrhoea [Unknown]
  - Product quality issue [Unknown]
